FAERS Safety Report 21630265 (Version 10)
Quarter: 2022Q4

REPORT INFORMATION
  Report Type: Report from Study
  Country: ES (occurrence: ES)
  Receive Date: 20221122
  Receipt Date: 20221222
  Transmission Date: 20230112
  Serious: Yes (Hospitalization)
  Sender: FDA-Public Use
  Company Number: ES-ABBVIE-4209481

PATIENT
  Age: 75 Year
  Sex: Male

DRUGS (3)
  1. CARBIDOPA\LEVODOPA [Suspect]
     Active Substance: CARBIDOPA\LEVODOPA
     Indication: Parkinson^s disease
     Route: 050
     Dates: start: 20210219, end: 202211
  2. CARBIDOPA\LEVODOPA [Suspect]
     Active Substance: CARBIDOPA\LEVODOPA
     Dosage: INCREASE THE CONTINUOUS RATE TO 4.4ML/H
     Route: 050
     Dates: start: 202211, end: 202212
  3. CARBIDOPA\LEVODOPA [Suspect]
     Active Substance: CARBIDOPA\LEVODOPA
     Dosage: DOSAGE INCREASED
     Route: 050
     Dates: start: 202212

REACTIONS (12)
  - Mucosal disorder [Recovered/Resolved]
  - Saliva discolouration [Not Recovered/Not Resolved]
  - Dyspnoea [Not Recovered/Not Resolved]
  - Musculoskeletal stiffness [Not Recovered/Not Resolved]
  - Cough [Recovered/Resolved]
  - On and off phenomenon [Unknown]
  - Constipation [Unknown]
  - Drug ineffective [Not Recovered/Not Resolved]
  - Oxygen saturation decreased [Recovered/Resolved]
  - Tooth deposit [Not Recovered/Not Resolved]
  - Enteral nutrition [Unknown]
  - Constipation [Unknown]

NARRATIVE: CASE EVENT DATE: 20220901
